FAERS Safety Report 8764881 (Version 2)
Quarter: 2012Q4

REPORT INFORMATION
  Report Type: 
  Country: US (occurrence: US)
  Receive Date: 20120901
  Receipt Date: 20121029
  Transmission Date: 20130627
  Serious: No
  Sender: FDA-Public Use
  Company Number: US-009507513-1208USA009124

PATIENT
  Age: 67 Year
  Sex: Female

DRUGS (1)
  1. INTRONA [Suspect]
     Indication: MALIGNANT MELANOMA STAGE IV
     Dosage: 18 miu, 3 times a week
     Route: 058
     Dates: start: 20120813

REACTIONS (3)
  - Restlessness [Not Recovered/Not Resolved]
  - Fatigue [Not Recovered/Not Resolved]
  - Product quality issue [Unknown]
